FAERS Safety Report 9058739 (Version 1)
Quarter: 2013Q1

REPORT INFORMATION
  Report Type: Spontaneous
  Country: BR (occurrence: BR)
  Receive Date: 20130204
  Receipt Date: 20130204
  Transmission Date: 20140127
  Serious: Yes (Other)
  Sender: FDA-Public Use
  Company Number: BR-009507513-1301BRA013783

PATIENT
  Age: 40 None
  Sex: Female
  Weight: 60 kg

DRUGS (4)
  1. NUVARING [Suspect]
     Indication: CONTRACEPTION
     Dosage: UNK
     Route: 067
     Dates: end: 2009
  2. NUVARING [Suspect]
     Dosage: UNK
     Route: 067
  3. RANITIDINE [Concomitant]
     Indication: GASTRITIS
     Dosage: 150 MG, PRN
     Route: 048
  4. TANDRILAX [Concomitant]
     Indication: HEADACHE
     Dosage: UNK, PRN
     Route: 048

REACTIONS (5)
  - Caesarean section [Recovered/Resolved]
  - Blood triglycerides increased [Not Recovered/Not Resolved]
  - Vaginal discharge [Recovering/Resolving]
  - Device breakage [Unknown]
  - Vulvovaginal discomfort [Recovered/Resolved]
